FAERS Safety Report 11621075 (Version 1)
Quarter: 2015Q4

REPORT INFORMATION
  Report Type: Report from Study
  Country: GR (occurrence: GR)
  Receive Date: 20151012
  Receipt Date: 20151012
  Transmission Date: 20160304
  Serious: Yes (Hospitalization)
  Sender: FDA-Public Use
  Company Number: GR-ABBVIE-14P-066-1280971-00

PATIENT
  Sex: Female
  Weight: 60 kg

DRUGS (13)
  1. DUODOPA [Suspect]
     Active Substance: CARBIDOPA\LEVODOPA
     Dosage: MORNING DOSE: 11 ML,CONTINUOUS RATE: 2.6 ML/H,EXTRA DOSE: 1.3 ML
     Route: 050
  2. DUODOPA [Suspect]
     Active Substance: CARBIDOPA\LEVODOPA
     Dosage: MD : 11 ML, CD : 2.3 ML/H, ED : 1.3 ML
     Route: 065
  3. JANUVIA [Concomitant]
     Active Substance: SITAGLIPTIN PHOSPHATE
     Indication: DIABETES MELLITUS
     Route: 048
     Dates: start: 2004
  4. THYROHORMONE [Concomitant]
     Indication: THYROID DISORDER
     Route: 048
  5. DUODOPA [Suspect]
     Active Substance: CARBIDOPA\LEVODOPA
     Indication: PARKINSON^S DISEASE
     Dosage: MD : 11 ML, CD : 3.1 ML/H, ED : 1.3 ML
     Route: 050
     Dates: start: 20140506
  6. SEROSMINE [Concomitant]
     Indication: DEPRESSION
     Route: 048
  7. DUODOPA [Suspect]
     Active Substance: CARBIDOPA\LEVODOPA
     Dosage: MD : 11 ML, CD : 3.2 ML/H, ED : 1.3 ML
     Route: 050
     Dates: start: 201410
  8. DUODOPA [Suspect]
     Active Substance: CARBIDOPA\LEVODOPA
     Dosage: MORNING DOSE: 11 ML,CONTINUOUS RATE: 2.9 ML/H,EXTRA DOSE: 1.3 ML
     Route: 050
  9. ACTOS [Concomitant]
     Active Substance: PIOGLITAZONE HYDROCHLORIDE
     Indication: DIABETES MELLITUS
     Route: 048
     Dates: start: 2004
  10. DOZILAX [Concomitant]
     Indication: DEMENTIA
     Route: 048
     Dates: start: 2010
  11. MADOPAR [Concomitant]
     Active Substance: BENSERAZIDE HYDROCHLORIDE\LEVODOPA
     Indication: PARKINSON^S DISEASE
  12. CLONOTRIL [Concomitant]
     Indication: INSOMNIA
     Route: 048
     Dates: start: 20141001
  13. DUODOPA [Suspect]
     Active Substance: CARBIDOPA\LEVODOPA
     Dosage: MD : 11 ML, CD : 2.6 ML/H, ED : 1.3 ML
     Route: 065

REACTIONS (20)
  - Aspiration [Recovering/Resolving]
  - Hypophagia [Not Recovered/Not Resolved]
  - Mood altered [Not Recovered/Not Resolved]
  - Masked facies [Not Recovered/Not Resolved]
  - Cough [Not Recovered/Not Resolved]
  - Salivary hypersecretion [Not Recovered/Not Resolved]
  - Gait disturbance [Not Recovered/Not Resolved]
  - Choking [Not Recovered/Not Resolved]
  - Hypophagia [Recovering/Resolving]
  - Decubitus ulcer [Unknown]
  - Bedridden [Not Recovered/Not Resolved]
  - Joint injury [Not Recovered/Not Resolved]
  - Muscle twitching [Not Recovered/Not Resolved]
  - Depression [Unknown]
  - Gait disturbance [Not Recovered/Not Resolved]
  - Decreased appetite [Not Recovered/Not Resolved]
  - Dystonia [Not Recovered/Not Resolved]
  - Weight decreased [Not Recovered/Not Resolved]
  - Bone deformity [Not Recovered/Not Resolved]
  - Muscle twitching [Not Recovered/Not Resolved]

NARRATIVE: CASE EVENT DATE: 201407
